FAERS Safety Report 9060059 (Version 1)
Quarter: 2013Q1

REPORT INFORMATION
  Report Type: Spontaneous
  Country: US (occurrence: None)
  Receive Date: 20130207
  Receipt Date: 20130207
  Transmission Date: 20140127
  Serious: Yes (Other)
  Sender: FDA-Public Use
  Company Number: None

PATIENT
  Sex: Female
  Weight: 54 kg

DRUGS (4)
  1. ROC RETINOL CORREXION MAX AW RSF TRT 1OZ [Suspect]
     Indication: SKIN WRINKLING
     Dosage: 1/2 PEA, 1XDAY, TOPICAL
     Route: 061
  2. ROC RETINOL CORREXION MAX AW RSF SRM 1OZ [Suspect]
     Dosage: 1/2 PEA, 1XDAY, TOPICAL
     Route: 061
  3. OXYCODONE [Concomitant]
  4. CYMBALTA (DULOXETINE HYDROCHLORIDE) [Concomitant]

REACTIONS (3)
  - Acne [None]
  - Abscess [None]
  - Skin discolouration [None]
